FAERS Safety Report 17648893 (Version 2)
Quarter: 2020Q2

REPORT INFORMATION
  Report Type: Spontaneous
  Country: FR (occurrence: FR)
  Receive Date: 20200408
  Receipt Date: 20200420
  Transmission Date: 20200713
  Serious: Yes (Other)
  Sender: FDA-Public Use
  Company Number: FR-009507513-2004FRA001093

PATIENT
  Age: 14 Year

DRUGS (1)
  1. TEMOZOLOMIDE. [Suspect]
     Active Substance: TEMOZOLOMIDE
     Indication: MEDULLOBLASTOMA
     Dosage: UNK

REACTIONS (4)
  - Hypogonadism [Unknown]
  - Deafness [Unknown]
  - Hypothyroidism [Unknown]
  - Growth hormone deficiency [Unknown]
